FAERS Safety Report 5227401-6 (Version None)
Quarter: 2007Q1

REPORT INFORMATION
  Report Type: 
  Country: None (occurrence: None)
  Receive Date: 20070202
  Receipt Date: 20070125
  Transmission Date: 20070707
  Serious: Yes (Death, Hospitalization)
  Sender: FDA-Public Use
  Company Number: FR-ELI_LILLY_AND_COMPANY-FR200611001504

PATIENT
  Age: 52 Year
  Sex: Female
  Weight: 42 kg

DRUGS (5)
  1. GEMZAR [Suspect]
     Indication: NON-SMALL CELL LUNG CANCER METASTATIC
     Dosage: 1737 MG, OTHER
     Route: 042
     Dates: start: 20061018
  2. CISPLATIN [Concomitant]
     Indication: NON-SMALL CELL LUNG CANCER METASTATIC
     Dosage: 111 MG, OTHER
     Route: 042
     Dates: start: 20061018
  3. SOLU-MEDROL [Concomitant]
     Dosage: 120 MG, DAILY (1/D)
     Route: 042
     Dates: start: 20061018
  4. ZOFRAN [Concomitant]
     Dosage: 8 MG, DAILY (1/D)
     Route: 042
     Dates: start: 20061018
  5. TRANXENE [Concomitant]
     Dosage: 25 MG, DAILY (1/D)
     Route: 042
     Dates: start: 20061018

REACTIONS (3)
  - ACUTE RESPIRATORY DISTRESS SYNDROME [None]
  - INTERSTITIAL LUNG DISEASE [None]
  - URTICARIA [None]
